FAERS Safety Report 7332421-1 (Version None)
Quarter: 2011Q1

REPORT INFORMATION
  Report Type: 
  Country: None (occurrence: None)
  Receive Date: 20110304
  Receipt Date: 20110221
  Transmission Date: 20110831
  Serious: Yes (Death, Hospitalization, Other)
  Sender: FDA-Public Use
  Company Number: CA-ROCHE-761189

PATIENT
  Age: 27 Year
  Sex: Male

DRUGS (2)
  1. OSELTAMIVIR [Suspect]
     Route: 048
  2. OSELTAMIVIR [Suspect]
     Indication: H1N1 INFLUENZA
     Route: 048

REACTIONS (4)
  - DEATH [None]
  - DRUG INEFFECTIVE [None]
  - GASTROINTESTINAL DISORDER [None]
  - PATHOGEN RESISTANCE [None]
